FAERS Safety Report 25707465 (Version 1)
Quarter: 2025Q3

REPORT INFORMATION
  Report Type: Spontaneous
  Country: US (occurrence: US)
  Receive Date: 20250820
  Receipt Date: 20250820
  Transmission Date: 20251021
  Serious: No
  Sender: ASTELLAS
  Company Number: US-ASTELLAS-2025-AER-012851

PATIENT
  Age: 57 Year
  Sex: Male

DRUGS (1)
  1. XTANDI [Suspect]
     Active Substance: ENZALUTAMIDE
     Indication: Product used for unknown indication
     Route: 050
     Dates: start: 202502, end: 20250301

REACTIONS (3)
  - Rash erythematous [Unknown]
  - Dry skin [Unknown]
  - Eczema [Unknown]

NARRATIVE: CASE EVENT DATE: 20250101
